FAERS Safety Report 21774665 (Version 1)
Quarter: 2022Q4

REPORT INFORMATION
  Report Type: Spontaneous
  Country: CA (occurrence: CA)
  Receive Date: 20221224
  Receipt Date: 20221224
  Transmission Date: 20230113
  Serious: Yes (Life-Threatening, Hospitalization)
  Sender: FDA-Public Use
  Company Number: None

PATIENT
  Age: 18 Year
  Sex: Female
  Weight: 50 kg

DRUGS (69)
  1. MYCOPHENOLATE MOFETIL [Suspect]
     Active Substance: MYCOPHENOLATE MOFETIL
     Indication: Product used for unknown indication
     Dosage: 2 EVERY 1 DAYS
     Route: 048
  2. ACETAMINOPHEN [Concomitant]
     Active Substance: ACETAMINOPHEN
  3. ALOXI [Concomitant]
     Active Substance: PALONOSETRON HYDROCHLORIDE
  4. ALTEPLASE [Concomitant]
     Active Substance: ALTEPLASE
     Dosage: LIQUID INTRAVENOUS
  5. AMLODIPINE [Concomitant]
     Active Substance: AMLODIPINE BESYLATE
     Route: 065
  6. ARANESP [Concomitant]
     Active Substance: DARBEPOETIN ALFA
     Dosage: SOLUTION INTRAVENOUS
  7. AZATHIOPRINE [Concomitant]
     Active Substance: AZATHIOPRINE
  8. CALCIUM CARBONATE [Concomitant]
     Active Substance: CALCIUM CARBONATE
  9. CALCIUM LACTATE [Concomitant]
     Active Substance: CALCIUM LACTATE
  10. CARDENE [Concomitant]
     Active Substance: NICARDIPINE HYDROCHLORIDE
  11. CEFAZOLIN [Concomitant]
     Active Substance: CEFAZOLIN
  12. CETIRIZINE [Concomitant]
     Active Substance: CETIRIZINE HYDROCHLORIDE
  13. CHOLECALCIFEROL [Concomitant]
     Active Substance: CHOLECALCIFEROL
  14. CLONIDINE [Concomitant]
     Active Substance: CLONIDINE
  15. CYPROHEPTADINE HYDROCHLORIDE [Concomitant]
     Active Substance: CYPROHEPTADINE HYDROCHLORIDE
  16. DEXMEDETOMIDINE [Concomitant]
     Active Substance: DEXMEDETOMIDINE
  17. DIMENHYDRINATE [Concomitant]
     Active Substance: DIMENHYDRINATE
  18. DIPHENHYDRAMINE [Concomitant]
     Active Substance: DIPHENHYDRAMINE
  19. DOBUTAMINE [Concomitant]
     Active Substance: DOBUTAMINE HYDROCHLORIDE
     Dosage: LIQUID INTRAVEOUS
  20. ENALAPRIL [Concomitant]
     Active Substance: ENALAPRIL
  21. EPINEPHRINE [Concomitant]
     Active Substance: EPINEPHRINE
     Dosage: SOLUTION INTRAMUSCULAR
     Route: 030
  22. FAMOTIDINE [Concomitant]
     Active Substance: FAMOTIDINE
  23. FERROUS GLUCONATE [Concomitant]
     Active Substance: FERROUS GLUCONATE
  24. FOLIC ACID [Concomitant]
     Active Substance: FOLIC ACID
  25. FUROSEMIDE [Concomitant]
     Active Substance: FUROSEMIDE
  26. HEPARIN SODIUM [Concomitant]
     Active Substance: HEPARIN SODIUM
     Dosage: SOLUTION INTRAVENOUS
  27. HYDROCORTISONE [Concomitant]
     Active Substance: HYDROCORTISONE
     Dosage: POWDER FOR SOLUTION INTRAMUSCULAR
  28. HYDROMORPHONE [Concomitant]
     Active Substance: HYDROMORPHONE
  29. HYDROXYZINE [Concomitant]
     Active Substance: HYDROXYZINE HYDROCHLORIDE
  30. INSULIN NOS [Concomitant]
     Active Substance: INSULIN NOS
  31. ISOPROTERENOL HYDROCHLORIDE [Concomitant]
     Active Substance: ISOPROTERENOL HYDROCHLORIDE
  32. LANSOPRAZOLE [Concomitant]
     Active Substance: LANSOPRAZOLE
     Dosage: CAPSULE, DELAYED RELEASE
  33. LEVOCARNITINE [Concomitant]
     Active Substance: LEVOCARNITINE
  34. LEVETIRACETAM [Concomitant]
     Active Substance: LEVETIRACETAM
     Route: 065
  35. LORAZEPAM [Concomitant]
     Active Substance: LORAZEPAM
     Route: 065
  36. MAGNESIUM [Concomitant]
     Active Substance: MAGNESIUM
  37. MAGNESIUM SULFATE [Concomitant]
     Active Substance: MAGNESIUM SULFATE
     Dosage: LIQUID INTRAMUSCULAR
  38. MELATONIN [Concomitant]
     Active Substance: MELATONIN
  39. MEROPENEM [Concomitant]
     Active Substance: MEROPENEM
     Dosage: POWDER FOR SOLUTION INTRAVENOUS
  40. METOLAZONE [Concomitant]
     Active Substance: METOLAZONE
  41. MIDAZOLAM [Concomitant]
     Active Substance: MIDAZOLAM
  42. MIDODRINE [Concomitant]
     Active Substance: MIDODRINE
  43. MORPHINE [Concomitant]
     Active Substance: MORPHINE
  44. NOREPINEPHRINE [Concomitant]
     Active Substance: NOREPINEPHRINE
  45. NYSTATIN [Concomitant]
     Active Substance: NYSTATIN
  46. ONDANSETRON [Concomitant]
     Active Substance: ONDANSETRON
  47. PIPERACILLIN AND TAZOBACTAM [Concomitant]
     Active Substance: PIPERACILLIN SODIUM\TAZOBACTAM SODIUM
  48. POTASSIUM CHLORIDE [Concomitant]
     Active Substance: POTASSIUM CHLORIDE
  49. POTASSIUM CITRATE [Concomitant]
     Active Substance: POTASSIUM CITRATE
  50. PREDNISONE [Concomitant]
     Active Substance: PREDNISONE
  51. PREGABALIN [Concomitant]
     Active Substance: PREGABALIN
  52. PROPOFOL [Concomitant]
     Active Substance: PROPOFOL
     Route: 065
  53. QUETIAPINE [Concomitant]
     Active Substance: QUETIAPINE
  54. THYMOCYTE IMMUNE GLOBULIN NOS [Concomitant]
     Active Substance: THYMOCYTE IMMUNE GLOBULIN NOS
  55. RITUXIMAB [Concomitant]
     Active Substance: RITUXIMAB
  56. SILDENAFIL [Concomitant]
     Active Substance: SILDENAFIL
  57. SODIUM BICARBONATE [Concomitant]
     Active Substance: SODIUM BICARBONATE
  58. SODIUM CHLORIDE [Concomitant]
     Active Substance: SODIUM CHLORIDE
  59. SODIUM PHOSPHATE [Concomitant]
     Active Substance: SODIUM PHOSPHATE
  60. SPIRONOLACTONE [Concomitant]
     Active Substance: SPIRONOLACTONE
  61. TACROLIMUS [Concomitant]
     Active Substance: TACROLIMUS
  62. TINZAPARIN [Concomitant]
     Active Substance: TINZAPARIN
  63. TRANEXAMIC ACID [Concomitant]
     Active Substance: TRANEXAMIC ACID
  64. SULFAMETHOXAZOLE\TRIMETHOPRIM [Concomitant]
     Active Substance: SULFAMETHOXAZOLE\TRIMETHOPRIM
  65. VANCOMYCIN [Concomitant]
     Active Substance: VANCOMYCIN
  66. VASOPRESSIN [Concomitant]
     Active Substance: VASOPRESSIN
  67. ZOPICLONE [Concomitant]
     Active Substance: ZOPICLONE
  68. MYCOPHENOLATE MOFETIL [Suspect]
     Active Substance: MYCOPHENOLATE MOFETIL
     Indication: Product used for unknown indication
     Dosage: 2 EVERY 1 DAYS
     Route: 042
  69. MYCOPHENOLATE MOFETIL [Suspect]
     Active Substance: MYCOPHENOLATE MOFETIL
     Indication: Product used for unknown indication
     Dosage: 2 EVERY 1 DAYS
     Route: 048

REACTIONS (1)
  - Necrotising oesophagitis [Recovered/Resolved]
